FAERS Safety Report 7707830-9 (Version None)
Quarter: 2011Q3

REPORT INFORMATION
  Report Type: 
  Country: None (occurrence: None)
  Receive Date: 20110824
  Receipt Date: 20110809
  Transmission Date: 20111222
  Serious: Yes (Other)
  Sender: FDA-Public Use
  Company Number: US-BAYER-2011-071778

PATIENT
  Age: 24 Year
  Sex: Male
  Weight: 77 kg

DRUGS (3)
  1. EXCEDRIN (MIGRAINE) [Suspect]
     Dosage: 2 DF, ONCE
     Dates: start: 20110809
  2. MIDOL MENSTRUAL COMPLETE CAPLETS [Suspect]
     Indication: TOOTHACHE
     Dosage: 2 DF, BID, BOTTLE COUNT 40S
     Route: 048
     Dates: start: 20110809, end: 20110809
  3. ANALGESICS [Concomitant]

REACTIONS (2)
  - HEART RATE DECREASED [None]
  - DIZZINESS [None]
